FAERS Safety Report 4378675-5 (Version None)
Quarter: 2004Q2

REPORT INFORMATION
  Report Type: 
  Country: None (occurrence: None)
  Receive Date: 20040610
  Receipt Date: 20040603
  Transmission Date: 20050107
  Serious: Yes (Hospitalization)
  Sender: FDA-Public Use
  Company Number: TCI2004A02036

PATIENT
  Age: 59 Year
  Sex: Male

DRUGS (6)
  1. ACTOS [Suspect]
     Indication: DIABETES MELLITUS NON-INSULIN-DEPENDENT
     Dosage: 15 MG (15 MG, 1 D); 30 MG (30 MG, 1 D)
     Route: 048
     Dates: start: 20010717, end: 20030805
  2. ACTOS [Suspect]
     Indication: DIABETES MELLITUS NON-INSULIN-DEPENDENT
     Dosage: 15 MG (15 MG, 1 D); 30 MG (30 MG, 1 D)
     Route: 048
     Dates: start: 20030806, end: 20031101
  3. METFORMIN HCL [Suspect]
     Dosage: PER ORAL
     Route: 048
     Dates: start: 20031001
  4. PROBUCOL [Concomitant]
  5. ACARBOSE [Concomitant]
  6. GLYBURIDE [Concomitant]

REACTIONS (3)
  - ALANINE AMINOTRANSFERASE INCREASED [None]
  - ASPARTATE AMINOTRANSFERASE INCREASED [None]
  - BLOOD CREATINE PHOSPHOKINASE INCREASED [None]
